FAERS Safety Report 14741739 (Version 2)
Quarter: 2019Q4

REPORT INFORMATION
  Report Type: Report from Study
  Country: None (occurrence: US)
  Receive Date: 20180410
  Receipt Date: 20191227
  Transmission Date: 20200122
  Serious: Yes (Other)
  Sender: FDA-Public Use
  Company Number: US-ABBVIE-18K-163-2298612-00

PATIENT
  Sex: Female
  Weight: 104.42 kg

DRUGS (4)
  1. FOLIC ACID. [Concomitant]
     Active Substance: FOLIC ACID
     Indication: RHEUMATOID ARTHRITIS
  2. HUMIRA [Suspect]
     Active Substance: ADALIMUMAB
     Route: 058
     Dates: start: 2018, end: 2018
  3. METHOTREXATE. [Concomitant]
     Active Substance: METHOTREXATE
     Indication: RHEUMATOID ARTHRITIS
  4. HUMIRA [Suspect]
     Active Substance: ADALIMUMAB
     Indication: RHEUMATOID ARTHRITIS
     Route: 058
     Dates: start: 2018, end: 2018

REACTIONS (13)
  - Large intestine polyp [Recovering/Resolving]
  - Mobility decreased [Unknown]
  - Hyperhidrosis [Unknown]
  - Drug ineffective [Unknown]
  - Headache [Not Recovered/Not Resolved]
  - Immunodeficiency [Recovered/Resolved]
  - Myalgia [Unknown]
  - Fatigue [Unknown]
  - Pyrexia [Recovered/Resolved]
  - Chills [Unknown]
  - Nausea [Unknown]
  - Dehydration [Unknown]
  - Influenza like illness [Unknown]

NARRATIVE: CASE EVENT DATE: 2018
